FAERS Safety Report 20396450 (Version 2)
Quarter: 2022Q1

REPORT INFORMATION
  Report Type: Spontaneous
  Country: PR (occurrence: PR)
  Receive Date: 20220130
  Receipt Date: 20220201
  Transmission Date: 20220423
  Serious: No
  Sender: FDA-Public Use
  Company Number: PR-ABBVIE-21K-131-3906648-00

PATIENT
  Sex: Female

DRUGS (1)
  1. HUMIRA [Suspect]
     Active Substance: ADALIMUMAB
     Indication: Product used for unknown indication
     Route: 058

REACTIONS (4)
  - Product dose omission issue [Unknown]
  - Peripheral swelling [Unknown]
  - Joint swelling [Unknown]
  - Product dose omission issue [Unknown]
